FAERS Safety Report 4332998-4 (Version None)
Quarter: 2004Q2

REPORT INFORMATION
  Report Type: 
  Country: None (occurrence: None)
  Receive Date: 20040401
  Receipt Date: 20040317
  Transmission Date: 20050107
  Serious: Yes (Life-Threatening, Hospitalization, Other)
  Sender: FDA-Public Use
  Company Number: 200411295BCC

PATIENT
  Sex: Male
  Weight: 115.6672 kg

DRUGS (3)
  1. ASPIRIN [Suspect]
     Indication: PAIN IN JAW
     Dosage: SEE IMAGE, ORAL
     Route: 048
     Dates: start: 20000401
  2. ASPIRIN [Suspect]
     Indication: PAIN IN JAW
     Dosage: SEE IMAGE, ORAL
     Route: 048
     Dates: start: 20000401
  3. HIGH BLOOD PRESSURE MEDICATION [Concomitant]

REACTIONS (1)
  - MYOCARDIAL INFARCTION [None]
